FAERS Safety Report 10368974 (Version 1)
Quarter: 2014Q3

REPORT INFORMATION
  Report Type: Spontaneous
  Country: US (occurrence: US)
  Receive Date: 20140807
  Receipt Date: 20140807
  Transmission Date: 20150326
  Serious: Yes (Hospitalization, Disabling)
  Sender: FDA-Public Use
  Company Number: US-WATSON-2014-16861

PATIENT
  Age: 79 Year
  Sex: Male

DRUGS (1)
  1. TRELSTAR [Suspect]
     Active Substance: TRIPTORELIN PAMOATE
     Indication: PROSTATE CANCER
     Dosage: 22.5 MG INJECTION GIVEN 2-3 MONTHS APART
     Route: 030
     Dates: start: 201212, end: 201306

REACTIONS (3)
  - Muscular weakness [Not Recovered/Not Resolved]
  - Pneumonia [Unknown]
  - Abasia [Not Recovered/Not Resolved]

NARRATIVE: CASE EVENT DATE: 20130224
